FAERS Safety Report 12633228 (Version 2)
Quarter: 2016Q3

REPORT INFORMATION
  Report Type: Spontaneous
  Country: US (occurrence: US)
  Receive Date: 20160808
  Receipt Date: 20160808
  Transmission Date: 20161109
  Serious: No
  Sender: FDA-Public Use
  Company Number: US-BEH-2016059712

PATIENT
  Sex: Male
  Weight: 67 kg

DRUGS (49)
  1. ZITHROMAX [Concomitant]
     Active Substance: AZITHROMYCIN DIHYDRATE
  2. AVINZA [Concomitant]
     Active Substance: MORPHINE SULFATE
  3. ASTELIN [Concomitant]
     Active Substance: AZELASTINE HYDROCHLORIDE
  4. CEFTIN [Concomitant]
     Active Substance: CEFUROXIME AXETIL
  5. MORPHINE SULFATE. [Concomitant]
     Active Substance: MORPHINE SULFATE
  6. NITROSTAT [Concomitant]
     Active Substance: NITROGLYCERIN
  7. SYMBICORT [Concomitant]
     Active Substance: BUDESONIDE\FORMOTEROL FUMARATE DIHYDRATE
  8. ASPIRIN. [Concomitant]
     Active Substance: ASPIRIN
  9. TEMAZEPAM. [Concomitant]
     Active Substance: TEMAZEPAM
  10. METHYLPHENIDATE ER [Concomitant]
     Active Substance: METHYLPHENIDATE
  11. CONCERTA [Concomitant]
     Active Substance: METHYLPHENIDATE HYDROCHLORIDE
  12. OFLOXACIN. [Concomitant]
     Active Substance: OFLOXACIN
  13. AUGMENTIN [Concomitant]
     Active Substance: AMOXICILLIN\CLAVULANATE POTASSIUM
  14. AMOXICILLIN. [Concomitant]
     Active Substance: AMOXICILLIN
  15. PROMETHAZINE [Concomitant]
     Active Substance: PROMETHAZINE\PROMETHAZINE HYDROCHLORIDE
  16. FOLIC ACID. [Concomitant]
     Active Substance: FOLIC ACID
  17. OMEPRAZOLE. [Concomitant]
     Active Substance: OMEPRAZOLE
  18. LIDODERM [Concomitant]
     Active Substance: LIDOCAINE
     Dosage: PATCH
  19. NASONEX [Concomitant]
     Active Substance: MOMETASONE FUROATE
  20. LEVOTHYROXINE. [Concomitant]
     Active Substance: LEVOTHYROXINE
  21. HIZENTRA [Suspect]
     Active Substance: HUMAN IMMUNOGLOBULIN G
     Indication: IMMUNODEFICIENCY COMMON VARIABLE
     Route: 058
  22. HIZENTRA [Suspect]
     Active Substance: HUMAN IMMUNOGLOBULIN G
     Route: 058
  23. TYLENOL-CODEINE NO.4 [Concomitant]
  24. OXYCODONE [Concomitant]
     Active Substance: OXYCODONE
  25. ERY-TAB EC [Concomitant]
  26. PROVENTIL HFA [Concomitant]
     Active Substance: ALBUTEROL SULFATE
  27. LISINOPRIL. [Concomitant]
     Active Substance: LISINOPRIL
  28. BACTRIM DS [Concomitant]
     Active Substance: SULFAMETHOXAZOLE\TRIMETHOPRIM
  29. HIZENTRA [Suspect]
     Active Substance: HUMAN IMMUNOGLOBULIN G
     Route: 058
  30. HIZENTRA [Suspect]
     Active Substance: HUMAN IMMUNOGLOBULIN G
     Route: 058
  31. BACTROBAN [Concomitant]
     Active Substance: MUPIROCIN\MUPIROCIN CALCIUM
  32. DIPHENHYDRAMINE. [Concomitant]
     Active Substance: DIPHENHYDRAMINE
  33. MUPIROCIN. [Concomitant]
     Active Substance: MUPIROCIN
  34. NYSTATIN. [Concomitant]
     Active Substance: NYSTATIN
  35. PEPCID [Concomitant]
     Active Substance: FAMOTIDINE
  36. PREVIDENT [Concomitant]
     Active Substance: SODIUM FLUORIDE
  37. VENTOLIN HFA [Concomitant]
     Active Substance: ALBUTEROL SULFATE
  38. ZENPEP [Concomitant]
     Active Substance: PANCRELIPASE AMYLASE\PANCRELIPASE LIPASE\PANCRELIPASE PROTEASE
  39. DONNATAL [Concomitant]
     Active Substance: ATROPINE SULFATE\HYOSCYAMINE SULFATE\PHENOBARBITAL\SCOPOLAMINE HYDROBROMIDE
  40. ACETAMINOPHEN. [Concomitant]
     Active Substance: ACETAMINOPHEN
  41. LIDOCAINE/PRILOCAINE [Concomitant]
     Active Substance: LIDOCAINE\PRILOCAINE
  42. EPIPEN [Concomitant]
     Active Substance: EPINEPHRINE
  43. AMBIEN [Concomitant]
     Active Substance: ZOLPIDEM TARTRATE
  44. CODEINE SULFATE. [Concomitant]
     Active Substance: CODEINE SULFATE
  45. OXYCONTIN [Concomitant]
     Active Substance: OXYCODONE HYDROCHLORIDE
  46. EUFLEXXA [Concomitant]
     Active Substance: HYALURONATE SODIUM
  47. DEPO-TESTOSTERONE [Concomitant]
     Active Substance: TESTOSTERONE CYPIONATE
  48. DIFLUCAN [Concomitant]
     Active Substance: FLUCONAZOLE
  49. TRETINOIN. [Concomitant]
     Active Substance: TRETINOIN

REACTIONS (2)
  - Bacterial infection [Unknown]
  - Administration site extravasation [Unknown]
